FAERS Safety Report 4663719-3 (Version None)
Quarter: 2005Q2

REPORT INFORMATION
  Report Type: 
  Country: None (occurrence: None)
  Receive Date: 20050516
  Receipt Date: 20050505
  Transmission Date: 20051028
  Serious: Yes (Hospitalization, Other)
  Sender: FDA-Public Use
  Company Number: HQWYE596009MAY05

PATIENT
  Age: 35 Year
  Sex: Female
  Weight: 127.12 kg

DRUGS (6)
  1. EFFEXOR XR [Suspect]
     Indication: ANXIETY
     Dosage: 225 MG, ORAL; 150 MG 1X PER 1 DAY, ORAL; 225 MG 1X PER 1 DAY ORAL
     Route: 048
     Dates: start: 20050301, end: 20050428
  2. EFFEXOR XR [Suspect]
     Indication: DEPRESSION
     Dosage: 225 MG, ORAL; 150 MG 1X PER 1 DAY, ORAL; 225 MG 1X PER 1 DAY ORAL
     Route: 048
     Dates: start: 20050301, end: 20050428
  3. EFFEXOR XR [Suspect]
     Indication: ANXIETY
     Dosage: 225 MG, ORAL; 150 MG 1X PER 1 DAY, ORAL; 225 MG 1X PER 1 DAY ORAL
     Route: 048
     Dates: start: 20050503, end: 20050504
  4. EFFEXOR XR [Suspect]
     Indication: DEPRESSION
     Dosage: 225 MG, ORAL; 150 MG 1X PER 1 DAY, ORAL; 225 MG 1X PER 1 DAY ORAL
     Route: 048
     Dates: start: 20050503, end: 20050504
  5. EFFEXOR XR [Suspect]
     Indication: ANXIETY
     Dosage: 225 MG, ORAL; 150 MG 1X PER 1 DAY, ORAL; 225 MG 1X PER 1 DAY ORAL
     Route: 048
     Dates: start: 20050505
  6. EFFEXOR XR [Suspect]
     Indication: DEPRESSION
     Dosage: 225 MG, ORAL; 150 MG 1X PER 1 DAY, ORAL; 225 MG 1X PER 1 DAY ORAL
     Route: 048
     Dates: start: 20050505

REACTIONS (15)
  - AGGRESSION [None]
  - AMNESIA [None]
  - ANGER [None]
  - ANXIETY [None]
  - ASTHENIA [None]
  - DIZZINESS [None]
  - DRUG WITHDRAWAL SYNDROME [None]
  - FEELING ABNORMAL [None]
  - HEADACHE [None]
  - HOSTILITY [None]
  - INSOMNIA [None]
  - INTENTIONAL MISUSE [None]
  - NERVOUSNESS [None]
  - OVERDOSE [None]
  - SUICIDE ATTEMPT [None]
